FAERS Safety Report 4536073-5 (Version None)
Quarter: 2004Q4

REPORT INFORMATION
  Report Type: 
  Country: None (occurrence: None)
  Receive Date: 20041222
  Receipt Date: 20041222
  Transmission Date: 20050328
  Serious: Yes (Life-Threatening)
  Sender: FDA-Public Use
  Company Number: None

PATIENT
  Sex: Female
  Weight: 93.1 kg

DRUGS (17)
  1. DAUNORUBICIN HCL [Suspect]
     Indication: MYELOID LEUKAEMIA
     Dosage: 90 MG/M2 - 189MG IV
     Route: 042
     Dates: start: 20041209, end: 20041211
  2. CYTARABINE [Suspect]
     Indication: MYELOID LEUKAEMIA
     Dosage: 100 MG/M2 - 210 MG IV
     Route: 042
     Dates: start: 20041209, end: 20041215
  3. K-DUR [Concomitant]
  4. ACETAMINOPHEN [Concomitant]
  5. DIPHENHYDRAMINE [Concomitant]
  6. ONDANSETRON [Concomitant]
  7. PROCHLOPERAZENE [Concomitant]
  8. LORAZEPAM [Concomitant]
  9. MORPHINE SULFATE [Concomitant]
  10. HYDROXYUREA [Concomitant]
  11. PROVERA [Concomitant]
  12. LEVAQUIN [Concomitant]
  13. MYCOLEX TROCHE [Concomitant]
  14. ACYCLOVIR [Concomitant]
  15. VANCOMYCIN [Concomitant]
  16. FLAGYL [Concomitant]
  17. CASOFUNGIN [Concomitant]

REACTIONS (7)
  - ABDOMINAL PAIN [None]
  - ANAEMIA [None]
  - DIARRHOEA HAEMORRHAGIC [None]
  - ENTERITIS [None]
  - NEUTROPENIA [None]
  - REFRACTORINESS TO PLATELET TRANSFUSION [None]
  - THROMBOCYTOPENIA [None]
